FAERS Safety Report 9371476 (Version 1)
Quarter: 2013Q2

REPORT INFORMATION
  Report Type: Spontaneous
  Country: US (occurrence: US)
  Receive Date: 20130627
  Receipt Date: 20130627
  Transmission Date: 20140414
  Serious: No
  Sender: FDA-Public Use
  Company Number: US-009507513-1306USA013313

PATIENT
  Sex: Female

DRUGS (1)
  1. INTRONA [Suspect]
     Indication: MALIGNANT MELANOMA
     Dosage: VIAL
     Route: 042
     Dates: start: 201305

REACTIONS (2)
  - Lip swelling [Recovered/Resolved]
  - Swelling face [Recovered/Resolved]
